FAERS Safety Report 10910210 (Version 1)
Quarter: 2015Q1

REPORT INFORMATION
  Report Type: Spontaneous
  Country: US (occurrence: US)
  Receive Date: 20150312
  Receipt Date: 20150312
  Transmission Date: 20150721
  Serious: No
  Sender: FDA-Public Use
  Company Number: US-SA-2014SA116502

PATIENT
  Sex: Female

DRUGS (2)
  1. NASACORT ALLERGY 24HR [Suspect]
     Active Substance: TRIAMCINOLONE ACETONIDE
     Indication: HYPERSENSITIVITY
     Dosage: 2 SPRAYS/NOSTRIL
     Route: 045
     Dates: start: 20140821
  2. NASACORT ALLERGY 24HR [Suspect]
     Active Substance: TRIAMCINOLONE ACETONIDE
     Indication: DYSPNOEA
     Dosage: 2 SPRAYS/NOSTRIL
     Route: 045
     Dates: start: 20140821

REACTIONS (5)
  - Drug ineffective [Unknown]
  - Skin irritation [Unknown]
  - Dry mouth [Unknown]
  - Lip pain [Unknown]
  - Oral herpes [Recovering/Resolving]
